FAERS Safety Report 4296307-1 (Version None)
Quarter: 2004Q1

REPORT INFORMATION
  Report Type: 
  Country: None (occurrence: None)
  Receive Date: 20040217
  Receipt Date: 20031014
  Transmission Date: 20041129
  Serious: No
  Sender: FDA-Public Use
  Company Number: US-GLAXOSMITHKLINE-A0430258A

PATIENT
  Age: 15 Year
  Sex: Female

DRUGS (1)
  1. LAMICTAL [Suspect]
     Dosage: 12.5MG PER DAY
     Route: 048

REACTIONS (2)
  - HEADACHE [None]
  - NAUSEA [None]
